FAERS Safety Report 8367919-0 (Version None)
Quarter: 2012Q2

REPORT INFORMATION
  Report Type: 
  Country: None (occurrence: None)
  Receive Date: 20120517
  Receipt Date: 20120511
  Transmission Date: 20120825
  Serious: Yes (Hospitalization)
  Sender: FDA-Public Use
  Company Number: US-INCYTE CORPORATION-2012IN000792

PATIENT
  Sex: Male

DRUGS (1)
  1. JAKAFI [Suspect]
     Indication: NEOPLASM MALIGNANT
     Dosage: 5 MG, BID
     Route: 048

REACTIONS (2)
  - PELVIC FRACTURE [None]
  - FALL [None]
